FAERS Safety Report 15267792 (Version 1)
Quarter: 2018Q3

REPORT INFORMATION
  Report Type: Spontaneous
  Country: US (occurrence: US)
  Receive Date: 20180724
  Receipt Date: 20180724
  Transmission Date: 20181010
  Serious: Yes (Death)
  Sender: FDA-Public Use
  Company Number: None

PATIENT
  Age: 55 Year
  Sex: Male
  Weight: 80.3 kg

DRUGS (2)
  1. CARBOPLATIN. [Suspect]
     Active Substance: CARBOPLATIN
     Dates: end: 20180705
  2. TAXOL [Suspect]
     Active Substance: PACLITAXEL
     Dates: end: 20180705

REACTIONS (4)
  - Dyspnoea [None]
  - Oxygen saturation decreased [None]
  - Heart rate increased [None]
  - Haemoptysis [None]

NARRATIVE: CASE EVENT DATE: 20180715
